FAERS Safety Report 9529696 (Version 1)
Quarter: 2013Q3

REPORT INFORMATION
  Report Type: Report from Study
  Country: JP (occurrence: JP)
  Receive Date: 20130917
  Receipt Date: 20130917
  Transmission Date: 20140515
  Serious: Yes (Hospitalization)
  Sender: FDA-Public Use
  Company Number: JP-GLAXOSMITHKLINE-B0737326A

PATIENT
  Age: 79 Year
  Sex: Female
  Weight: 63 kg

DRUGS (15)
  1. REVOLADE [Suspect]
     Indication: IMMUNE THROMBOCYTOPENIC PURPURA
     Dosage: 12.5MG PER DAY
     Route: 048
     Dates: start: 20110609, end: 20110718
  2. REVOLADE [Suspect]
     Indication: IMMUNE THROMBOCYTOPENIC PURPURA
     Dosage: 12.5MG THREE TIMES PER WEEK
     Route: 048
     Dates: start: 20110719, end: 20110801
  3. PREDNISOLONE [Concomitant]
     Indication: IMMUNE THROMBOCYTOPENIC PURPURA
     Route: 048
     Dates: end: 20110628
  4. PREDNISOLONE [Concomitant]
     Indication: IMMUNE THROMBOCYTOPENIC PURPURA
     Route: 048
     Dates: start: 20110629, end: 20110705
  5. PREDNISOLONE [Concomitant]
     Indication: IMMUNE THROMBOCYTOPENIC PURPURA
     Route: 048
     Dates: start: 20110706, end: 20110719
  6. PREDNISOLONE [Concomitant]
     Indication: IMMUNE THROMBOCYTOPENIC PURPURA
     Route: 048
     Dates: start: 20110720, end: 20110802
  7. AMLODIPINE [Concomitant]
     Route: 048
     Dates: end: 20110616
  8. MICARDIS [Concomitant]
     Route: 048
     Dates: start: 20110617, end: 20110722
  9. AMARYL [Concomitant]
     Route: 048
     Dates: start: 20110614
  10. NOVOLIN R [Concomitant]
     Route: 058
     Dates: start: 20110629
  11. DIFLUCAN [Concomitant]
     Indication: INFECTION PROPHYLAXIS
     Route: 048
     Dates: start: 20110617
  12. ADONA (AC-17) [Concomitant]
     Indication: IMMUNE THROMBOCYTOPENIC PURPURA
     Route: 048
     Dates: end: 20110620
  13. TRANSAMIN [Concomitant]
     Indication: IMMUNE THROMBOCYTOPENIC PURPURA
     Dates: end: 20110620
  14. URSO [Concomitant]
     Route: 048
     Dates: start: 20110706
  15. NEO-MINOPHAGEN-C [Concomitant]
     Route: 042
     Dates: start: 20110729

REACTIONS (6)
  - Portal vein thrombosis [Recovered/Resolved]
  - Hepatic encephalopathy [Recovered/Resolved]
  - Liver disorder [Recovered/Resolved]
  - Mesenteric vein thrombosis [Recovered/Resolved]
  - Deep vein thrombosis [Unknown]
  - Liver disorder [Unknown]
